FAERS Safety Report 9154164 (Version 1)
Quarter: 2013Q1

REPORT INFORMATION
  Report Type: Spontaneous
  Country: US (occurrence: US)
  Receive Date: 20130311
  Receipt Date: 20130311
  Transmission Date: 20140127
  Serious: No
  Sender: FDA-Public Use
  Company Number: US-PFIZER INC-2013082150

PATIENT
  Age: 57 Year
  Sex: Female
  Weight: 63.49 kg

DRUGS (6)
  1. CHANTIX [Suspect]
     Indication: SMOKING CESSATION THERAPY
     Dosage: 0.5 MG DAILY
     Route: 048
     Dates: start: 2013, end: 2013
  2. CHANTIX [Suspect]
     Dosage: UNK
     Route: 048
     Dates: start: 2013, end: 2013
  3. CHANTIX [Suspect]
     Dosage: 1 MG, UNK
     Route: 048
     Dates: start: 2013
  4. OXYCODONE [Concomitant]
     Indication: PAIN
     Dosage: 15 MG, AS NEEDED
  5. LEXAPRO [Concomitant]
     Indication: PAIN
     Dosage: 20 MG DAILY
  6. FENTANYL [Concomitant]
     Indication: PAIN
     Dosage: 12.5 MG, ONCE EVERY TWO DAYS

REACTIONS (2)
  - Blood cholesterol increased [Unknown]
  - Nausea [Unknown]
